FAERS Safety Report 5024741-0 (Version None)
Quarter: 2006Q2

REPORT INFORMATION
  Report Type: 
  Country: None (occurrence: None)
  Receive Date: 20060426
  Receipt Date: 20060227
  Transmission Date: 20061013
  Serious: Yes (Other)
  Sender: FDA-Public Use
  Company Number: 2006030545

PATIENT
  Age: 70 Year
  Sex: Female
  Weight: 61.2356 kg

DRUGS (6)
  1. LYRICA [Suspect]
     Indication: ARTHRALGIA
     Dosage: 50 MG (50 MG, 1 IN 1 D), ORAL
     Route: 048
     Dates: start: 20060208
  2. LYRICA [Suspect]
     Indication: BACK PAIN
     Dosage: 50 MG (50 MG, 1 IN 1 D), ORAL
     Route: 048
     Dates: start: 20060208
  3. LYRICA [Suspect]
     Indication: PAIN IN EXTREMITY
     Dosage: 50 MG (50 MG, 1 IN 1 D), ORAL
     Route: 048
     Dates: start: 20060208
  4. METHADONE HCL [Concomitant]
  5. PERCOCET [Concomitant]
  6. LORAZEPAM [Concomitant]

REACTIONS (4)
  - DIZZINESS [None]
  - HEADACHE [None]
  - TREMOR [None]
  - VISION BLURRED [None]
